FAERS Safety Report 9173506 (Version 1)
Quarter: 2013Q1

REPORT INFORMATION
  Report Type: Spontaneous
  Country: US (occurrence: US)
  Receive Date: 20130320
  Receipt Date: 20130320
  Transmission Date: 20140127
  Serious: Yes (Other)
  Sender: FDA-Public Use
  Company Number: US-ELI_LILLY_AND_COMPANY-US201303003438

PATIENT
  Sex: Female
  Weight: 82.99 kg

DRUGS (3)
  1. BYETTA [Suspect]
     Indication: TYPE 2 DIABETES MELLITUS
     Dosage: 5 UG, BID
     Route: 058
     Dates: start: 2006
  2. BYETTA [Suspect]
     Dosage: 10 UG, BID
     Route: 058
  3. AVANDIA [Concomitant]
     Indication: TYPE 2 DIABETES MELLITUS
     Route: 048

REACTIONS (4)
  - Thyroid cancer [Not Recovered/Not Resolved]
  - Parotid gland enlargement [Unknown]
  - Weight decreased [Recovered/Resolved]
  - Blood glucose decreased [Not Recovered/Not Resolved]
